FAERS Safety Report 7366276-6 (Version None)
Quarter: 2011Q1

REPORT INFORMATION
  Report Type: 
  Country: None (occurrence: None)
  Receive Date: 20110225
  Receipt Date: 20101109
  Transmission Date: 20110831
  Serious: Yes (Hospitalization)
  Sender: FDA-Public Use
  Company Number: 318099

PATIENT
  Age: 55 Year
  Sex: Male
  Weight: 70 kg

DRUGS (3)
  1. GLUCOPHAGE [Concomitant]
  2. VICTOZA [Suspect]
     Indication: TYPE 2 DIABETES MELLITUS
     Dosage: 0.6 MG, SINGLE, SUBCUTANEOUS
     Route: 058
     Dates: start: 20101107, end: 20101107
  3. JANUVIA [Concomitant]

REACTIONS (1)
  - PANCREATITIS [None]
